FAERS Safety Report 15135050 (Version 2)
Quarter: 2018Q3

REPORT INFORMATION
  Report Type: Report from Study
  Country: US (occurrence: US)
  Receive Date: 20180712
  Receipt Date: 20180712
  Transmission Date: 20181010
  Serious: Yes (Hospitalization)
  Sender: FDA-Public Use
  Company Number: PHHO2015US004386

PATIENT
  Age: 62 Year
  Sex: Female

DRUGS (46)
  1. PROAIR HFA [Concomitant]
     Active Substance: ALBUTEROL SULFATE
     Indication: COUGH
  2. ALLEGRA [Concomitant]
     Active Substance: FEXOFENADINE HYDROCHLORIDE
     Indication: RHINITIS ALLERGIC
     Dosage: 60 UG, BID PRN
     Route: 048
     Dates: start: 20091209
  3. ROBITUSSIN DM [Concomitant]
     Active Substance: DEXTROMETHORPHAN HYDROBROMIDE\GUAIFENESIN
     Indication: COUGH
     Dosage: 5 ML, Q4H PRN
     Route: 048
     Dates: start: 20130122
  4. MAG OXIDE [Concomitant]
     Active Substance: MAGNESIUM OXIDE
     Dosage: 400 MG, BID
     Route: 048
     Dates: start: 20150130, end: 20150225
  5. AFINITOR [Suspect]
     Active Substance: EVEROLIMUS
     Indication: BREAST CANCER METASTATIC
     Dosage: UNK
     Route: 048
     Dates: start: 20111110, end: 20140604
  6. PROAIR HFA [Concomitant]
     Active Substance: ALBUTEROL SULFATE
     Indication: BRONCHOSPASM
     Dosage: 90 UG = 2 PUFFS, Q4H, PRN
     Route: 055
     Dates: start: 20120606
  7. POTASSIUM CHLORIDE. [Concomitant]
     Active Substance: POTASSIUM CHLORIDE
     Indication: HYPOKALAEMIA
     Dosage: 20 MEQ, QD (DAILY)
     Route: 048
     Dates: start: 20120606
  8. MAG OXIDE [Concomitant]
     Active Substance: MAGNESIUM OXIDE
     Dosage: 800 MG, BID
     Route: 048
     Dates: start: 20150319
  9. FUROSEMIDE. [Concomitant]
     Active Substance: FUROSEMIDE
     Dosage: 40 MG, ON MON, WED, FRI
     Route: 048
     Dates: start: 20141003, end: 20150114
  10. AMILORIDE [Concomitant]
     Active Substance: AMILORIDE
     Dosage: 10 MG, QD
     Route: 048
  11. OMEPRAZOLE. [Concomitant]
     Active Substance: OMEPRAZOLE
     Indication: GASTROOESOPHAGEAL REFLUX DISEASE
     Dosage: 20 MG, QD (DAILY)
     Route: 048
     Dates: start: 19880126
  12. CALCIUM + VIT D [Concomitant]
     Active Substance: CALCIUM\VITAMIN D
     Indication: VITAMIN SUPPLEMENTATION
     Dosage: 500 MG (1250) ? 200 UNIT, BID
     Route: 048
     Dates: start: 20110718
  13. MAG OXIDE [Concomitant]
     Active Substance: MAGNESIUM OXIDE
     Indication: HYPOMAGNESAEMIA
     Dosage: 400 MG, QD (DAILY)
     Route: 048
     Dates: start: 20150116, end: 20150129
  14. MAG OXIDE [Concomitant]
     Active Substance: MAGNESIUM OXIDE
     Dosage: 600 MG, BID
     Route: 048
     Dates: start: 20150226, end: 20150317
  15. MAGNESIUM [Concomitant]
     Active Substance: MAGNESIUM
     Dosage: 4 G, QW
     Route: 042
     Dates: start: 20150212, end: 20150212
  16. MAGNESIUM [Concomitant]
     Active Substance: MAGNESIUM
     Dosage: 4 G, QW
     Route: 042
     Dates: start: 20150219, end: 20150219
  17. MAGNESIUM [Concomitant]
     Active Substance: MAGNESIUM
     Dosage: 4 G, QW
     Route: 042
     Dates: start: 20150402, end: 20150423
  18. AMILORIDE [Concomitant]
     Active Substance: AMILORIDE
     Indication: DIURETIC THERAPY
     Dosage: 5 MG, QD
     Route: 048
     Dates: start: 20150401, end: 20150519
  19. HYDROCHLOROTHIAZIDE. [Suspect]
     Active Substance: HYDROCHLOROTHIAZIDE
     Indication: HYPERTENSION
     Dosage: 25 MG, QD
     Route: 048
     Dates: start: 20110701
  20. PHENOBARBITAL. [Concomitant]
     Active Substance: PHENOBARBITAL
     Indication: SEIZURE
     Dosage: 64.8 MG, BID
     Route: 048
     Dates: start: 20111209
  21. FERROUS SULFATE. [Concomitant]
     Active Substance: FERROUS SULFATE
     Indication: ANAEMIA
     Dosage: 324 MG, BID
     Route: 048
     Dates: start: 20090625
  22. POTASSIUM CHLORIDE. [Concomitant]
     Active Substance: POTASSIUM CHLORIDE
     Dosage: 20 MEQ, TID
     Route: 048
     Dates: start: 20141003, end: 20141117
  23. MAGNESIUM [Concomitant]
     Active Substance: MAGNESIUM
     Dosage: 4 G, QW
     Route: 042
     Dates: start: 20150305, end: 20150305
  24. FUROSEMIDE. [Concomitant]
     Active Substance: FUROSEMIDE
     Indication: DIURETIC THERAPY
     Dosage: 80 MG, ON MON, WED, FRI
     Route: 048
     Dates: start: 20140923
  25. AFINITOR [Suspect]
     Active Substance: EVEROLIMUS
     Dosage: UNK
     Route: 048
     Dates: start: 20150326
  26. COMPARATOR PACLITAXEL [Suspect]
     Active Substance: PACLITAXEL
     Dosage: 144 MG, DAY 1, 8, 15
     Route: 042
     Dates: start: 20150326
  27. CHLORTHALIDONE SANDOZ [Suspect]
     Active Substance: CHLORTHALIDONE
     Indication: OEDEMA
     Dosage: 25 MG, QD (DAILY)
     Route: 048
     Dates: start: 20150216, end: 20150317
  28. RANITIDINE. [Concomitant]
     Active Substance: RANITIDINE
     Indication: GASTROOESOPHAGEAL REFLUX DISEASE
     Dosage: 150 MG, BID
     Route: 048
     Dates: start: 19880126
  29. FERROUS SULFATE. [Concomitant]
     Active Substance: FERROUS SULFATE
     Dosage: 324 MG, BID
     Route: 048
     Dates: start: 20140606
  30. MAGNESIUM [Concomitant]
     Active Substance: MAGNESIUM
     Indication: HYPOMAGNESAEMIA
     Dosage: 4 G, QW
     Route: 042
     Dates: start: 20150205, end: 20150205
  31. MAGNESIUM [Concomitant]
     Active Substance: MAGNESIUM
     Dosage: 4 G, QW
     Route: 042
     Dates: start: 20150326, end: 20150326
  32. AFINITOR [Suspect]
     Active Substance: EVEROLIMUS
     Dosage: UNK
     Route: 048
     Dates: start: 20140612, end: 20150326
  33. COMPARATOR PACLITAXEL [Suspect]
     Active Substance: PACLITAXEL
     Indication: BREAST CANCER METASTATIC
     Dosage: 192 MG, DAY 1, 8, 15
     Route: 042
     Dates: start: 20111110, end: 20140606
  34. GLIPIZIDE. [Concomitant]
     Active Substance: GLIPIZIDE
     Indication: DIABETES MELLITUS
     Dosage: 20 MG, QD (DAILY)
     Route: 048
     Dates: start: 20130606
  35. MELOXICAM. [Concomitant]
     Active Substance: MELOXICAM
     Indication: ARTHRALGIA
     Dosage: 7.5 MG, QD (DAILY)
     Route: 048
     Dates: start: 20130617
  36. POTASSIUM CHLORIDE. [Concomitant]
     Active Substance: POTASSIUM CHLORIDE
     Dosage: 20 MEQ, TID
     Route: 048
     Dates: start: 20150305, end: 20150305
  37. GLUCOPHAGE [Concomitant]
     Active Substance: METFORMIN HYDROCHLORIDE
     Indication: DIABETES MELLITUS
     Dosage: 1000 MG, BID
     Route: 048
     Dates: start: 20110701
  38. MAGNESIUM [Concomitant]
     Active Substance: MAGNESIUM
     Dosage: 4 G, QW
     Route: 042
     Dates: start: 20150318, end: 20150318
  39. COMPARATOR TRASTUZUMAB [Suspect]
     Active Substance: TRASTUZUMAB
     Dosage: 280 MG, DAY 1, 8, 15, 22
     Route: 042
     Dates: start: 20150326
  40. FLONASE [Concomitant]
     Active Substance: FLUTICASONE PROPIONATE
     Indication: RHINITIS ALLERGIC
     Dosage: 50 UG, QD (DAILY)
     Route: 006
     Dates: start: 20091209
  41. LISINOPRIL. [Concomitant]
     Active Substance: LISINOPRIL
     Indication: HYPERTENSION
     Dosage: 20 MG, QD (DAILY)
     Route: 048
     Dates: start: 20101126
  42. COMPARATOR TRASTUZUMAB [Suspect]
     Active Substance: TRASTUZUMAB
     Indication: BREAST CANCER METASTATIC
     Dosage: 280 MG, DAY 1, 8, 15, 22
     Route: 042
     Dates: start: 20111110, end: 20150326
  43. COMPARATOR PACLITAXEL [Suspect]
     Active Substance: PACLITAXEL
     Dosage: 144 MG, DAY 1, 8, 15
     Route: 042
     Dates: start: 20140612, end: 20150326
  44. POTASSIUM CHLORIDE. [Concomitant]
     Active Substance: POTASSIUM CHLORIDE
     Dosage: 20 MEQ, TID
     Route: 048
     Dates: start: 20141120
  45. GABAPENTIN. [Concomitant]
     Active Substance: GABAPENTIN
     Indication: NEUROPATHY PERIPHERAL
     Dosage: 100 MG, TID
     Route: 048
     Dates: start: 20140226
  46. MAGNESIUM [Concomitant]
     Active Substance: MAGNESIUM
     Dosage: 4 G, QW
     Route: 042
     Dates: start: 20150226, end: 20150226

REACTIONS (1)
  - Hypomagnesaemia [Recovering/Resolving]

NARRATIVE: CASE EVENT DATE: 20150318
